FAERS Safety Report 7451818-2 (Version None)
Quarter: 2011Q2

REPORT INFORMATION
  Report Type: 
  Country: None (occurrence: None)
  Receive Date: 20110502
  Receipt Date: 20100525
  Transmission Date: 20111010
  Serious: No
  Sender: FDA-Public Use
  Company Number: US-ASTRAZENECA-2010SE23939

PATIENT
  Age: 49 Year
  Sex: Female
  Weight: 90.7 kg

DRUGS (4)
  1. SUPPLEMENTS [Concomitant]
  2. NEXIUM [Suspect]
     Route: 048
     Dates: start: 20040101
  3. ZYRTEC [Concomitant]
  4. SUDAFED 12 HOUR [Concomitant]

REACTIONS (5)
  - ABDOMINAL DISTENSION [None]
  - ABDOMINAL PAIN UPPER [None]
  - COELIAC DISEASE [None]
  - FLATULENCE [None]
  - INCORRECT DOSE ADMINISTERED [None]
